FAERS Safety Report 4279389-2 (Version None)
Quarter: 2004Q1

REPORT INFORMATION
  Report Type: 
  Country: None (occurrence: None)
  Receive Date: 20040127
  Receipt Date: 20031017
  Transmission Date: 20041129
  Serious: Yes (Life-Threatening, Hospitalization)
  Sender: FDA-Public Use
  Company Number: WAES 0310USA02152

PATIENT
  Age: 63 Year
  Sex: Female
  Weight: 96 kg

DRUGS (5)
  1. LASIX [Concomitant]
     Indication: HYPERTENSION
     Route: 048
     Dates: start: 20030729
  2. LASIX [Concomitant]
     Indication: OEDEMA
     Route: 048
     Dates: start: 20030729
  3. TOPROL-XL [Concomitant]
     Indication: HYPERTENSION
     Route: 048
     Dates: start: 20020919
  4. VIOXX [Suspect]
     Indication: OSTEOARTHRITIS
     Route: 048
     Dates: start: 20031009, end: 20031012
  5. VIOXX [Suspect]
     Indication: PAIN
     Route: 048
     Dates: start: 20031009, end: 20031012

REACTIONS (1)
  - CONVULSION [None]
